FAERS Safety Report 25435717 (Version 1)
Quarter: 2025Q2

REPORT INFORMATION
  Report Type: Other
  Country: CN (occurrence: CN)
  Receive Date: 20250613
  Receipt Date: 20250613
  Transmission Date: 20250717
  Serious: Yes (Hospitalization, Other)
  Sender: XCOVERY HOLDINGS
  Company Number: CN-XCO-202500051

PATIENT
  Age: 80 Year
  Weight: 57 kg

DRUGS (2)
  1. ENSARTINIB HYDROCHLORIDE [Suspect]
     Active Substance: ENSARTINIB HYDROCHLORIDE
     Indication: Lung neoplasm malignant
     Route: 048
     Dates: start: 20250404, end: 20250518
  2. ENSARTINIB HYDROCHLORIDE [Suspect]
     Active Substance: ENSARTINIB HYDROCHLORIDE
     Indication: Lung neoplasm malignant
     Route: 048
     Dates: start: 20250404, end: 20250518

REACTIONS (5)
  - Product use issue [Unknown]
  - Face oedema [Recovered/Resolved]
  - Renal impairment [Recovering/Resolving]
  - Pruritus [Recovering/Resolving]
  - Rash [Recovered/Resolved]
